FAERS Safety Report 10113474 (Version 1)
Quarter: 2014Q2

REPORT INFORMATION
  Report Type: Spontaneous
  Country: US (occurrence: US)
  Receive Date: 20140425
  Receipt Date: 20140425
  Transmission Date: 20141212
  Serious: Yes (Hospitalization)
  Sender: FDA-Public Use
  Company Number: US-BAYER-2014-059648

PATIENT
  Age: 37 Year
  Sex: Female
  Weight: 168.71 kg

DRUGS (12)
  1. YAZ [Suspect]
  2. ZOLPIDEM [Concomitant]
     Dosage: 10 MG, UNK
  3. ATIVAN [Concomitant]
     Dosage: UNK
     Dates: start: 20080113
  4. CONCERTA [Concomitant]
     Dosage: 54 MG, QD
     Dates: start: 20080113
  5. WELLBUTRIN [Concomitant]
     Dosage: 300 MG, QD
     Dates: start: 20080113
  6. EFFEXOR [Concomitant]
     Dosage: 300 MG, QD
     Dates: start: 20080113
  7. SINGULAIR [Concomitant]
     Dosage: 10 MG, UNK
     Dates: start: 20080113
  8. ALLEGRA [Concomitant]
     Dosage: 180 MG, UNK
     Dates: start: 20080113
  9. XANAX [Concomitant]
     Indication: ANXIETY
     Dosage: 0.25 MG, BID
     Dates: start: 20080113
  10. FLONASE [Concomitant]
     Dosage: UNK UNK, QD
     Dates: start: 20080113
  11. ALEVE [Concomitant]
     Dosage: UNK
     Dates: start: 20080113
  12. CEREFOLIN NAC [Concomitant]
     Dosage: UNK
     Dates: start: 20080113

REACTIONS (1)
  - Pulmonary embolism [None]
